FAERS Safety Report 4335954-5 (Version None)
Quarter: 2004Q2

REPORT INFORMATION
  Report Type: 
  Country: None (occurrence: None)
  Receive Date: 20040406
  Receipt Date: 20040322
  Transmission Date: 20050107
  Serious: Yes (Hospitalization)
  Sender: FDA-Public Use
  Company Number: 2004-FF-00196FF

PATIENT
  Age: 40 Year
  Sex: Male

DRUGS (5)
  1. VIRAMUNE [Suspect]
     Indication: HIV INFECTION
     Dosage: 200 MG (200 MG)  PO  : 400 MG (200 MG)
     Route: 048
     Dates: start: 20030610, end: 20030625
  2. VIRAMUNE [Suspect]
     Indication: HIV INFECTION
     Dosage: 200 MG (200 MG)  PO  : 400 MG (200 MG)
     Route: 048
     Dates: start: 20030626, end: 20030826
  3. BACTRIM [Concomitant]
     Route: 048
  4. VIREAD [Concomitant]
     Route: 048
  5. COMBIVIR [Concomitant]
     Indication: HIV INFECTION

REACTIONS (2)
  - DERMATITIS BULLOUS [None]
  - PORPHYRIA [None]
